FAERS Safety Report 5803879-1 (Version None)
Quarter: 2008Q3

REPORT INFORMATION
  Report Type: 
  Country: None (occurrence: None)
  Receive Date: 20080707
  Receipt Date: 20080619
  Transmission Date: 20090109
  Serious: Yes (Life-Threatening)
  Sender: FDA-Public Use
  Company Number: S08-SWI-02243-01

PATIENT
  Age: 42 Year
  Sex: Male
  Weight: 116 kg

DRUGS (4)
  1. ESCITALOPRAM OXALATE [Suspect]
     Indication: DEPRESSION
     Dosage: 10 MG QD PO
     Route: 048
     Dates: start: 20060928
  2. CLOZAPINE [Suspect]
     Indication: SCHIZOPHRENIA
     Dosage: 300 MG QD PO
     Route: 048
     Dates: start: 20031110
  3. CANDESARTAN CILEXETIL [Concomitant]
  4. CONCOR (BISOPROLOL FUMARATE) [Concomitant]

REACTIONS (6)
  - DEPRESSION [None]
  - DRUG LEVEL DECREASED [None]
  - ELECTROCARDIOGRAM REPOLARISATION ABNORMALITY [None]
  - ELECTROCARDIOGRAM ST SEGMENT ABNORMAL [None]
  - ELECTROCARDIOGRAM T WAVE INVERSION [None]
  - SCHIZOAFFECTIVE DISORDER [None]
